FAERS Safety Report 10196616 (Version 1)
Quarter: 2014Q2

REPORT INFORMATION
  Report Type: Spontaneous
  Country: US (occurrence: US)
  Receive Date: 20140527
  Receipt Date: 20140527
  Transmission Date: 20141212
  Serious: Yes (Other)
  Sender: FDA-Public Use
  Company Number: US-PURDUE-USA-2014-0114143

PATIENT
  Age: 60 Year
  Sex: Female
  Weight: 92.52 kg

DRUGS (5)
  1. OXYCONTIN (NDA 22-272) [Suspect]
     Indication: PAIN
     Dosage: 480 MG, TID
     Route: 048
  2. TOPAMAX [Concomitant]
     Indication: BIPOLAR DISORDER
     Dosage: 100 MG, BID
     Dates: start: 1999
  3. ADDERALL [Concomitant]
     Indication: ATTENTION DEFICIT/HYPERACTIVITY DISORDER
     Dosage: 30 MG, DAILY
     Dates: start: 1999
  4. XANAX [Concomitant]
     Indication: ANXIETY DISORDER
     Dosage: 2 MG, TID
     Dates: start: 1999
  5. PROZAC [Concomitant]
     Indication: BIPOLAR DISORDER
     Dosage: 20 MG, HS
     Dates: start: 1999

REACTIONS (1)
  - Type 2 diabetes mellitus [Unknown]
